FAERS Safety Report 25210943 (Version 2)
Quarter: 2025Q2

REPORT INFORMATION
  Report Type: Report from Study
  Country: US (occurrence: US)
  Receive Date: 20250417
  Receipt Date: 20250523
  Transmission Date: 20250716
  Serious: No
  Sender: TAKEDA
  Company Number: US-TAKEDA-2015DX000380

PATIENT
  Age: 53 Year
  Sex: Female
  Weight: 68.04 kg

DRUGS (9)
  1. ECALLANTIDE [Suspect]
     Active Substance: ECALLANTIDE
     Indication: Hereditary angioedema
  2. ECALLANTIDE [Suspect]
     Active Substance: ECALLANTIDE
     Indication: Immune system disorder
  3. ECALLANTIDE [Suspect]
     Active Substance: ECALLANTIDE
  4. ECALLANTIDE [Suspect]
     Active Substance: ECALLANTIDE
  5. ECALLANTIDE [Suspect]
     Active Substance: ECALLANTIDE
     Dosage: 30 MILLIGRAM, QD
     Dates: start: 20150812
  6. ECALLANTIDE [Suspect]
     Active Substance: ECALLANTIDE
  7. ECALLANTIDE [Suspect]
     Active Substance: ECALLANTIDE
  8. ECALLANTIDE [Suspect]
     Active Substance: ECALLANTIDE
  9. PAXIL [Concomitant]
     Active Substance: PAROXETINE HYDROCHLORIDE
     Dosage: 30 MILLIGRAM, QD

REACTIONS (4)
  - Ankle fracture [Recovering/Resolving]
  - Pain in extremity [Recovering/Resolving]
  - Product administration error [Recovered/Resolved]
  - Hereditary angioedema [Recovered/Resolved]

NARRATIVE: CASE EVENT DATE: 20150701
